FAERS Safety Report 6141546-8 (Version None)
Quarter: 2009Q2

REPORT INFORMATION
  Report Type: 
  Country: None (occurrence: None)
  Receive Date: 20090402
  Receipt Date: 20090326
  Transmission Date: 20091009
  Serious: Yes (Hospitalization, Disabling)
  Sender: FDA-Public Use
  Company Number: A0597941A

PATIENT
  Sex: Male
  Weight: 92.7 kg

DRUGS (16)
  1. PAXIL [Suspect]
     Indication: DEPRESSION
     Dosage: 60MG PER DAY
     Route: 048
     Dates: start: 19970318
  2. XANAX [Suspect]
     Indication: ANXIETY
     Dosage: 180TAB SINGLE DOSE
     Route: 048
     Dates: start: 20021103, end: 20021103
  3. TYLENOL [Suspect]
     Dosage: 150TAB SINGLE DOSE
     Route: 048
     Dates: start: 20021103, end: 20021103
  4. DARVOCET-N 100 [Suspect]
     Route: 048
     Dates: start: 19990830, end: 19990830
  5. BUSPAR [Concomitant]
  6. ATIVAN [Concomitant]
  7. KLONOPIN [Concomitant]
  8. RAMIPRIL [Concomitant]
  9. ALTACE [Concomitant]
     Dosage: 5MG PER DAY
  10. PREVACID [Concomitant]
     Dosage: 20MG PER DAY
  11. ZANAFLEX [Concomitant]
  12. TYLENOL W/ CODEINE NO. 3 [Concomitant]
  13. FLEXERIL [Concomitant]
  14. VICODIN [Concomitant]
  15. ARTHROTEC [Concomitant]
  16. IMIPRAMINE [Concomitant]
     Dates: end: 19970318

REACTIONS (19)
  - AGGRESSION [None]
  - BIPOLAR I DISORDER [None]
  - BURNS THIRD DEGREE [None]
  - DEPRESSION [None]
  - DYSPHAGIA [None]
  - EMOTIONAL DISTRESS [None]
  - HYPOTENSION [None]
  - HYPOXIA [None]
  - INJURY [None]
  - INTENTIONAL OVERDOSE [None]
  - INTENTIONAL SELF-INJURY [None]
  - LETHARGY [None]
  - MEMORY IMPAIRMENT [None]
  - MOOD SWINGS [None]
  - OBSESSIVE-COMPULSIVE DISORDER [None]
  - PAIN [None]
  - SCAR [None]
  - SUICIDAL IDEATION [None]
  - SUICIDE ATTEMPT [None]
